FAERS Safety Report 8216975 (Version 2)
Quarter: 2012Q4

REPORT INFORMATION
  Report Type: 
  Country: US (occurrence: US)
  Receive Date: 20111101
  Receipt Date: 20120910
  Transmission Date: 20130627
  Serious: Yes (Hospitalization)
  Sender: FDA-Public Use
  Company Number: US-US-EMD SERONO, INC.-7091774

PATIENT
  Age: 50 Year
  Sex: Female

DRUGS (2)
  1. REBIF [Suspect]
     Indication: NERVOUS SYSTEM DISORDER
     Route: 058
     Dates: start: 200912, end: 201110
  2. UNSPECIFIED BIRTH CONTROL [Concomitant]
     Indication: CONTRACEPTION

REACTIONS (1)
  - Central nervous system inflammation [Unknown]
